FAERS Safety Report 8764013 (Version 7)
Quarter: 2013Q2

REPORT INFORMATION
  Report Type: Spontaneous
  Country: US (occurrence: US)
  Receive Date: 20120831
  Receipt Date: 20130624
  Transmission Date: 20140414
  Serious: Yes (Hospitalization, Disabling, Other)
  Sender: FDA-Public Use
  Company Number: US-009507513-1208USA009019

PATIENT
  Sex: Female
  Weight: 83.9 kg

DRUGS (19)
  1. FOSAMAX [Suspect]
     Indication: OSTEOPENIA
     Dosage: 70 MG, QW
     Route: 048
     Dates: start: 200105, end: 20080314
  2. FOSAMAX [Suspect]
     Indication: BONE DENSITY DECREASED
  3. FOSAMAX [Suspect]
     Indication: OSTEOPOROSIS
  4. ALENDRONATE SODIUM [Suspect]
     Indication: BONE DENSITY DECREASED
     Dosage: 70 MG, QW
     Route: 048
     Dates: start: 20080411, end: 20080718
  5. ALENDRONATE SODIUM [Suspect]
     Indication: OSTEOPENIA
  6. ACTONEL [Suspect]
     Indication: BONE DENSITY DECREASED
     Dosage: 150 MG, QM
     Route: 048
     Dates: start: 20080912, end: 201101
  7. ACTONEL [Suspect]
     Indication: OSTEOPENIA
  8. CHOLECALCIFEROL [Concomitant]
     Dosage: 1000 IU, UNK
     Dates: start: 1969
  9. VITAMINS (UNSPECIFIED) [Concomitant]
     Dosage: UNK, QD
     Dates: start: 1969
  10. UBIDECARENONE [Concomitant]
     Dosage: 100 MG, UNK
     Dates: start: 1969
  11. CALCIUM (UNSPECIFIED) [Concomitant]
     Dosage: 1800 MG, W / D
     Dates: start: 1969
  12. ORIGIN OMEGA-3 FISH OIL [Concomitant]
     Dosage: 1200 MG, UNK
     Dates: start: 1969
  13. VITAMIN E [Concomitant]
     Dosage: 400 MG, UNK
     Dates: start: 1969
  14. GLYCEROPHOSPHATES (UNSPECIFIED) (+) VITAMIN B COMPLEX [Concomitant]
     Dosage: UNK, QD
     Dates: start: 1969
  15. MAGNESIUM (UNSPECIFIED) [Concomitant]
     Dosage: UNK
     Dates: start: 1969
  16. CITALOPRAM [Concomitant]
     Indication: ANXIETY
     Dosage: 20 MG, QD
  17. CITALOPRAM [Concomitant]
     Indication: DEPRESSION
  18. CELEXA [Concomitant]
     Indication: ANXIETY
     Dosage: 20 MG, QD
     Route: 048
  19. CELEXA [Concomitant]
     Indication: DEPRESSION

REACTIONS (48)
  - Femur fracture [Unknown]
  - Intramedullary rod insertion [Unknown]
  - Femur fracture [Not Recovered/Not Resolved]
  - Fall [Unknown]
  - Intramedullary rod insertion [Unknown]
  - Low turnover osteopathy [Not Recovered/Not Resolved]
  - Vocal cord paralysis [Not Recovered/Not Resolved]
  - Brain cancer metastatic [Unknown]
  - Limb injury [Unknown]
  - Neoplasm malignant [Unknown]
  - Colon cancer stage 0 [Unknown]
  - Colectomy [Unknown]
  - Angina pectoris [Unknown]
  - Anxiety [Unknown]
  - Anxiety [Unknown]
  - Depression [Unknown]
  - Calcium deficiency [Unknown]
  - Sciatica [Recovering/Resolving]
  - Deep vein thrombosis [Unknown]
  - Arthritis [Unknown]
  - Spinal osteoarthritis [Unknown]
  - Hypothyroidism [Unknown]
  - Lower limb fracture [Unknown]
  - Rheumatoid arthritis [Unknown]
  - Thyroid disorder [Unknown]
  - Osteoarthritis [Unknown]
  - Inflammation [Unknown]
  - Hand fracture [Unknown]
  - Metaplasia [Unknown]
  - Coronary artery disease [Unknown]
  - Osteoarthritis [Unknown]
  - Cystocele [Unknown]
  - Rectocele [Unknown]
  - Diverticulum [Unknown]
  - Diverticulitis [Unknown]
  - Blood glucose increased [Unknown]
  - White blood cell count increased [Unknown]
  - International normalised ratio increased [Unknown]
  - Anaemia postoperative [Unknown]
  - Prothrombin time prolonged [Unknown]
  - Adverse event [Unknown]
  - International normalised ratio increased [Unknown]
  - Fall [Unknown]
  - Spinal fracture [Unknown]
  - Nausea [Unknown]
  - Constipation [Unknown]
  - Drug hypersensitivity [Unknown]
  - Oedema peripheral [Not Recovered/Not Resolved]
